FAERS Safety Report 11377364 (Version 1)
Quarter: 2015Q3

REPORT INFORMATION
  Report Type: Spontaneous
  Country: US (occurrence: US)
  Receive Date: 20150811
  Receipt Date: 20150811
  Transmission Date: 20151125
  Serious: No
  Sender: FDA-Public Use
  Company Number: US-ELI_LILLY_AND_COMPANY-US200811003748

PATIENT
  Sex: Male

DRUGS (2)
  1. HUMULIN R [Suspect]
     Active Substance: INSULIN HUMAN
     Indication: DIABETES MELLITUS
  2. HUMULIN N [Suspect]
     Active Substance: INSULIN HUMAN
     Indication: DIABETES MELLITUS

REACTIONS (7)
  - Altered state of consciousness [Unknown]
  - Blood glucose increased [Unknown]
  - Hostility [Unknown]
  - Screaming [Unknown]
  - Blood glucose decreased [Unknown]
  - Decreased appetite [Unknown]
  - Abnormal behaviour [Unknown]
